FAERS Safety Report 12209952 (Version 2)
Quarter: 2016Q2

REPORT INFORMATION
  Report Type: Spontaneous
  Country: PL (occurrence: PL)
  Receive Date: 20160325
  Receipt Date: 20160503
  Transmission Date: 20160815
  Serious: Yes (Hospitalization, Other)
  Sender: FDA-Public Use
  Company Number: PL-ROCHE-1731879

PATIENT
  Age: 7 Year
  Sex: Male
  Weight: 20.5 kg

DRUGS (2)
  1. LIRRA [Concomitant]
  2. XOLAIR [Suspect]
     Active Substance: OMALIZUMAB
     Indication: PRODUCT USED FOR UNKNOWN INDICATION
     Route: 058
     Dates: start: 20160112

REACTIONS (15)
  - Dermatitis atopic [Unknown]
  - Anxiety [Unknown]
  - Capillary disorder [Unknown]
  - Dental caries [Unknown]
  - Pruritus [Unknown]
  - Hypothalamo-pituitary disorder [Unknown]
  - Aphthous ulcer [Unknown]
  - Bronchitis [Unknown]
  - Hypersensitivity [Unknown]
  - Pharyngeal erythema [Unknown]
  - Asthma [Unknown]
  - Pneumonia streptococcal [Unknown]
  - Hallucination [Recovered/Resolved]
  - Pallor [Unknown]
  - Contusion [Unknown]

NARRATIVE: CASE EVENT DATE: 20160313
